FAERS Safety Report 5015212-6 (Version None)
Quarter: 2006Q2

REPORT INFORMATION
  Report Type: 
  Country: None (occurrence: None)
  Receive Date: 20060425
  Receipt Date: 20060323
  Transmission Date: 20061013
  Serious: No
  Sender: FDA-Public Use
  Company Number: 223391

PATIENT
  Age: 59 Year
  Sex: Male
  Weight: 105 kg

DRUGS (2)
  1. XOLAIR [Suspect]
     Indication: ASTHMA
     Dosage: 225 MG, Q2W, SUBCUTANEOUS
     Route: 058
     Dates: start: 20060125, end: 20060323
  2. SPIRIVA [Concomitant]

REACTIONS (2)
  - ANAPHYLACTIC REACTION [None]
  - URTICARIA [None]
